FAERS Safety Report 14676379 (Version 1)
Quarter: 2018Q1

REPORT INFORMATION
  Report Type: Spontaneous
  Country: US (occurrence: US)
  Receive Date: 20180323
  Receipt Date: 20180323
  Transmission Date: 20180509
  Serious: No
  Sender: FDA-Public Use
  Company Number: None

PATIENT
  Age: 64 Year
  Sex: Female
  Weight: 68.04 kg

DRUGS (7)
  1. METFORMIN [Suspect]
     Active Substance: METFORMIN HYDROCHLORIDE
     Route: 048
  2. GLYMIPERIDE [Concomitant]
  3. METFORMIN [Suspect]
     Active Substance: METFORMIN HYDROCHLORIDE
     Indication: DIABETES MELLITUS
     Route: 048
     Dates: start: 201702
  4. ATENOLOL. [Concomitant]
     Active Substance: ATENOLOL
  5. DILTIAZEM. [Concomitant]
     Active Substance: DILTIAZEM
  6. LIQUID B VIT. [Concomitant]
  7. GLUCOPHAGE [Concomitant]
     Active Substance: METFORMIN HYDROCHLORIDE

REACTIONS (11)
  - Hypertension [None]
  - Asthenia [None]
  - Diarrhoea [None]
  - Product substitution issue [None]
  - Dizziness [None]
  - Fatigue [None]
  - Muscle spasms [None]
  - Irritability [None]
  - Nausea [None]
  - Muscular weakness [None]
  - Drug effect decreased [None]

NARRATIVE: CASE EVENT DATE: 201712
